FAERS Safety Report 8518266-5 (Version None)
Quarter: 2012Q3

REPORT INFORMATION
  Report Type: 
  Country: None (occurrence: None)
  Receive Date: 20120718
  Receipt Date: 20111214
  Transmission Date: 20120928
  Serious: No
  Sender: FDA-Public Use
  Company Number: US-BRISTOL-MYERS SQUIBB COMPANY-16293219

PATIENT
  Age: 71 Year
  Sex: Female

DRUGS (2)
  1. COUMADIN [Suspect]
     Indication: ATRIAL FIBRILLATION
     Dosage: RECEIVED 3 YEARS TAKES TABLETS 6/7 DAYS
  2. ASPIRIN [Concomitant]
     Dosage: LOW DOSE ASPIRIN

REACTIONS (2)
  - SKIN DISCOLOURATION [None]
  - PRURITUS [None]
